FAERS Safety Report 14186961 (Version 1)
Quarter: 2017Q4

REPORT INFORMATION
  Report Type: Spontaneous
  Country: JP (occurrence: JP)
  Receive Date: 20171114
  Receipt Date: 20171114
  Transmission Date: 20180321
  Serious: Yes (Hospitalization)
  Sender: FDA-Public Use
  Company Number: JP-SHENZHEN TECHDOW PHARMACEUTICAL CO. LTD-JP-2017TEC0000059

PATIENT
  Age: 75 Year
  Sex: Female
  Weight: 49 kg

DRUGS (14)
  1. PROPOFOL. [Concomitant]
     Active Substance: PROPOFOL
     Indication: GENERAL ANAESTHESIA
     Dosage: UNK
  2. PHENYLEPHRINE [Concomitant]
     Active Substance: PHENYLEPHRINE\PHENYLEPHRINE HYDROCHLORIDE
     Indication: PRODUCT USED FOR UNKNOWN INDICATION
     Dosage: 0.4 - 0.5 MG/H, CONTINUOUS INFUSION
  3. ARGATROBAN. [Suspect]
     Active Substance: ARGATROBAN
     Indication: PRODUCT USED FOR UNKNOWN INDICATION
     Dosage: 0.8 ?G/KG PER MINUTE, CONTINUOUS INFUSION
  4. PROPOFOL. [Concomitant]
     Active Substance: PROPOFOL
     Dosage: UNK
  5. HEPARIN SODIUM INJECTION USP, PRESERVATIVE FREE [Suspect]
     Active Substance: HEPARIN SODIUM
     Indication: PRODUCT USED FOR UNKNOWN INDICATION
     Dosage: 400 IU, BEGINNING OF SURGERY
     Route: 042
  6. REMIFENTANIL [Concomitant]
     Active Substance: REMIFENTANIL
     Indication: GENERAL ANAESTHESIA
     Dosage: 0.5 ?G/KG PER MINUTE
  7. ROCURONIUM [Concomitant]
     Active Substance: ROCURONIUM BROMIDE
     Indication: PRODUCT USED FOR UNKNOWN INDICATION
     Dosage: 50 MG, UNK
  8. CLOPIDOGREL [Suspect]
     Active Substance: CLOPIDOGREL BISULFATE
     Dosage: 75 MG, MORNING OF SURGERY
     Route: 048
  9. ASPIRIN                            /00002701/ [Suspect]
     Active Substance: ASPIRIN
     Indication: PRODUCT USED FOR UNKNOWN INDICATION
     Dosage: 200 MG, DAY BEFORE SURGERY
     Route: 048
  10. REMIFENTANIL [Concomitant]
     Active Substance: REMIFENTANIL
     Dosage: 0.1 ?G/KG PER MINUTE
  11. ASPIRIN                            /00002701/ [Suspect]
     Active Substance: ASPIRIN
     Dosage: 100 MG, DAY OF SURGERY
     Route: 048
  12. CLOPIDOGREL [Suspect]
     Active Substance: CLOPIDOGREL BISULFATE
     Indication: PRODUCT USED FOR UNKNOWN INDICATION
     Dosage: 300 MG, DAY BEFORE SURGERY
     Route: 048
  13. FENTANYL. [Concomitant]
     Active Substance: FENTANYL
     Indication: PRODUCT USED FOR UNKNOWN INDICATION
     Dosage: 100 ?G, UNK
  14. HEPARIN SODIUM INJECTION USP, PRESERVATIVE FREE [Suspect]
     Active Substance: HEPARIN SODIUM
     Dosage: 500 IU, DURING SURGERY
     Route: 042

REACTIONS (3)
  - Haematemesis [Recovered/Resolved]
  - Oesophageal haemorrhage [Recovering/Resolving]
  - Shock haemorrhagic [Recovered/Resolved]
